FAERS Safety Report 14755533 (Version 2)
Quarter: 2018Q2

REPORT INFORMATION
  Report Type: Spontaneous
  Country: RU (occurrence: RU)
  Receive Date: 20180413
  Receipt Date: 20180622
  Transmission Date: 20180711
  Serious: Yes (Hospitalization, Other)
  Sender: FDA-Public Use
  Company Number: RU-ADIENNEP-2018AD000189

PATIENT
  Age: 46 Year
  Sex: Male

DRUGS (3)
  1. MYLERAN [Suspect]
     Active Substance: BUSULFAN
     Indication: STEM CELL TRANSPLANT
     Dosage: 3.2 MG/KG
  2. TEPADINA [Suspect]
     Active Substance: THIOTEPA
     Indication: STEM CELL TRANSPLANT
     Dosage: 5 MG/KG
  3. FLUDARABIN [Suspect]
     Active Substance: FLUDARABINE PHOSPHATE
     Indication: STEM CELL TRANSPLANT
     Dosage: 50 MG/KG

REACTIONS (5)
  - Hepatic vein occlusion [Recovering/Resolving]
  - Graft versus host disease [Recovering/Resolving]
  - Thrombocytopenia [Recovering/Resolving]
  - Generalised oedema [Recovering/Resolving]
  - Cytomegalovirus infection [Recovering/Resolving]
